FAERS Safety Report 20350817 (Version 3)
Quarter: 2022Q1

REPORT INFORMATION
  Report Type: Spontaneous
  Country: MX (occurrence: MX)
  Receive Date: 20220119
  Receipt Date: 20220129
  Transmission Date: 20220423
  Serious: Yes (Death, Other)
  Sender: FDA-Public Use
  Company Number: MX-TAKEDA-2022TUS003420

PATIENT
  Age: 67 Year
  Sex: Male

DRUGS (1)
  1. PONATINIB [Suspect]
     Active Substance: PONATINIB
     Indication: Leukaemia
     Dosage: 45 MILLIGRAM
     Route: 048

REACTIONS (2)
  - Acute leukaemia [Fatal]
  - Acute myocardial infarction [Fatal]

NARRATIVE: CASE EVENT DATE: 20220110
